FAERS Safety Report 5227807-5 (Version None)
Quarter: 2007Q1

REPORT INFORMATION
  Report Type: 
  Country: None (occurrence: None)
  Receive Date: 20070202
  Receipt Date: 20070123
  Transmission Date: 20070707
  Serious: Yes (Hospitalization)
  Sender: FDA-Public Use
  Company Number: IT-PFIZER INC-2007006797

PATIENT
  Sex: Male

DRUGS (6)
  1. UNASYN [Suspect]
     Indication: ANTIBIOTIC PROPHYLAXIS
     Route: 030
     Dates: start: 20070112, end: 20070112
  2. ANGIZEM [Concomitant]
  3. ISOSORBIDE MONONITRATE [Concomitant]
  4. CLEXANE [Concomitant]
     Dates: start: 20070104, end: 20070112
  5. DELTACORTENE [Concomitant]
     Dates: start: 20070111, end: 20070112
  6. VASTAREL [Concomitant]

REACTIONS (2)
  - ERYTHEMA [None]
  - HYPOVENTILATION [None]
